FAERS Safety Report 20144690 (Version 1)
Quarter: 2021Q4

REPORT INFORMATION
  Report Type: Spontaneous
  Country: US (occurrence: None)
  Receive Date: 20211202
  Receipt Date: 20211202
  Transmission Date: 20220303
  Serious: Yes (Hospitalization)
  Sender: FDA-Public Use
  Company Number: None

PATIENT
  Age: 77 Year

DRUGS (9)
  1. REGEN-COV [Suspect]
     Active Substance: CASIRIVIMAB\IMDEVIMAB
     Indication: COVID-19
  2. Fluticasone Propionate 50mcg/actuation nasal spray [Concomitant]
  3. FUROSEMIDE [Concomitant]
     Active Substance: FUROSEMIDE
  4. Hydralazine 50mg tablet [Concomitant]
  5. Nebivolol 10mg tablet [Concomitant]
  6. Olopatadine 0.2% eye drops [Concomitant]
  7. Omeprazole 40mg capsule [Concomitant]
  8. Ondansetron HCl 4mg tablet [Concomitant]
  9. Oxybutynin Chloride ER 5mg tablet, extended release 24 hr [Concomitant]

REACTIONS (3)
  - Blood pressure systolic increased [None]
  - Confusional state [None]
  - Hyponatraemia [None]

NARRATIVE: CASE EVENT DATE: 20211127
